FAERS Safety Report 10722572 (Version 3)
Quarter: 2015Q1

REPORT INFORMATION
  Report Type: Report from Study
  Country: CO (occurrence: CO)
  Receive Date: 20150120
  Receipt Date: 20150217
  Transmission Date: 20150721
  Serious: Yes (Other)
  Sender: FDA-Public Use
  Company Number: CO-EMD SERONO-8004542

PATIENT
  Age: 74 Year
  Sex: Female

DRUGS (2)
  1. SAIZEN [Suspect]
     Active Substance: SOMATROPIN
     Indication: HYPOPITUITARISM
     Route: 058
     Dates: start: 20140303
  2. IODINE [Concomitant]
     Active Substance: IODINE
     Indication: NEOPLASM MALIGNANT

REACTIONS (5)
  - Dizziness [Unknown]
  - Thyroid cancer [Unknown]
  - Headache [Unknown]
  - Empty sella syndrome [Unknown]
  - Off label use [Unknown]

NARRATIVE: CASE EVENT DATE: 20141203
